FAERS Safety Report 7966577-4 (Version None)
Quarter: 2011Q4

REPORT INFORMATION
  Report Type: 
  Country: None (occurrence: None)
  Receive Date: 20111209
  Receipt Date: 20111202
  Transmission Date: 20120403
  Serious: Yes (Other)
  Sender: FDA-Public Use
  Company Number: AU-BRISTOL-MYERS SQUIBB COMPANY-16274102

PATIENT
  Age: 37 Year
  Sex: Male

DRUGS (1)
  1. EFAVIRENZ [Suspect]
     Dates: start: 20100501, end: 20100501

REACTIONS (1)
  - NERVOUS SYSTEM DISORDER [None]
